FAERS Safety Report 7943960-4 (Version None)
Quarter: 2011Q4

REPORT INFORMATION
  Report Type: 
  Country: None (occurrence: None)
  Receive Date: 20111128
  Receipt Date: 20111118
  Transmission Date: 20120403
  Serious: Yes (Other)
  Sender: FDA-Public Use
  Company Number: US-ROCHE-1014568

PATIENT
  Sex: Female

DRUGS (3)
  1. BONIVA [Suspect]
     Indication: OSTEOPOROSIS
     Dates: start: 20061231
  2. ACTONEL [Suspect]
     Indication: OSTEOPOROSIS
     Dates: start: 20061231
  3. FOSAMAX [Suspect]
     Indication: OSTEOPOROSIS
     Dates: start: 20061231

REACTIONS (2)
  - FEMUR FRACTURE [None]
  - EMOTIONAL DISTRESS [None]
